FAERS Safety Report 13305262 (Version 3)
Quarter: 2017Q1

REPORT INFORMATION
  Report Type: Report from Study
  Country: FR (occurrence: FR)
  Receive Date: 20170308
  Receipt Date: 20170330
  Transmission Date: 20170428
  Serious: Yes (Death, Hospitalization, Other)
  Sender: FDA-Public Use
  Company Number: FR-AMGEN-FRACT2016072304

PATIENT
  Age: 65 Year
  Sex: Male
  Weight: 74 kg

DRUGS (12)
  1. VP-16 [Concomitant]
     Active Substance: ETOPOSIDE
     Dosage: UNK
  2. DUROGESIC [Concomitant]
     Active Substance: FENTANYL
     Dosage: 75 (UNK UNITS), EVERY 72 HOURS
  3. METHOTREXATE SODIUM. [Suspect]
     Active Substance: METHOTREXATE SODIUM
     Dosage: 20 MG, WEEKLY
     Route: 065
     Dates: start: 2007, end: 20131008
  4. CICLOSPORIN [Suspect]
     Active Substance: CYCLOSPORINE
     Indication: PSORIASIS
     Dosage: UNK
     Route: 048
  5. SPECIAFOLDINE [Concomitant]
     Active Substance: FOLIC ACID
     Indication: PRODUCT USED FOR UNKNOWN INDICATION
     Dosage: 10 MG, WEEKLY
     Route: 048
     Dates: start: 2013, end: 201506
  6. CARBOPLATIN. [Concomitant]
     Active Substance: CARBOPLATIN
     Dosage: UNK
     Route: 042
  7. SORIATANE [Suspect]
     Active Substance: ACITRETIN
     Indication: PRODUCT USED FOR UNKNOWN INDICATION
     Dosage: 10 MG, 1X/DAY
     Route: 048
     Dates: start: 20131008, end: 201501
  8. METHOTREXATE SODIUM. [Suspect]
     Active Substance: METHOTREXATE SODIUM
     Indication: PSORIASIS
     Dosage: 25 MG, WEEKLY
     Route: 048
     Dates: start: 2007, end: 20131021
  9. ETANERCEPT [Suspect]
     Active Substance: ETANERCEPT
     Indication: PSORIASIS
     Dosage: 50 MG, 2 TIMES/WK
     Route: 058
     Dates: start: 20150721, end: 201602
  10. ETANERCEPT [Suspect]
     Active Substance: ETANERCEPT
     Dosage: 50 MG, QWK
     Route: 058
     Dates: start: 201602, end: 201604
  11. ETANERCEPT [Suspect]
     Active Substance: ETANERCEPT
     Dosage: 25 MG, QWK
     Route: 058
     Dates: start: 20160426
  12. METHOTREXATE SODIUM. [Suspect]
     Active Substance: METHOTREXATE SODIUM
     Dosage: 15 MG, WEEKLY
     Route: 048
     Dates: start: 20140312, end: 20150721

REACTIONS (3)
  - Neuroendocrine tumour of the lung metastatic [Fatal]
  - Drug ineffective [Recovering/Resolving]
  - Basal cell carcinoma [Recovered/Resolved]

NARRATIVE: CASE EVENT DATE: 20141126
